FAERS Safety Report 5564156-X (Version None)
Quarter: 2007Q4

REPORT INFORMATION
  Report Type: 
  Country: None (occurrence: None)
  Receive Date: 20071212
  Receipt Date: 20071203
  Transmission Date: 20080405
  Serious: Yes (Other)
  Sender: FDA-Public Use
  Company Number: 2007333883

PATIENT
  Sex: Female

DRUGS (1)
  1. LISTERINE (MENTHOL, METHYL SALICYLATE, EUCALYPTOL, THYMOL) [Suspect]
     Dosage: ORAL
     Route: 048
     Dates: start: 20071018

REACTIONS (7)
  - ERYTHEMA [None]
  - FEELING ABNORMAL [None]
  - PAIN [None]
  - PYREXIA [None]
  - RASH [None]
  - SWOLLEN TONGUE [None]
  - THERMAL BURN [None]
